FAERS Safety Report 16195680 (Version 7)
Quarter: 2019Q4

REPORT INFORMATION
  Report Type: Spontaneous
  Country: ES (occurrence: ES)
  Receive Date: 20190415
  Receipt Date: 20191122
  Transmission Date: 20200122
  Serious: Yes (Hospitalization, Other)
  Sender: FDA-Public Use
  Company Number: ES-009507513-1904ESP005771

PATIENT
  Age: 58 Year
  Sex: Female
  Weight: 78.5 kg

DRUGS (3)
  1. FIDAXOMICIN [Suspect]
     Active Substance: FIDAXOMICIN
     Indication: CLOSTRIDIUM DIFFICILE INFECTION
     Dosage: UNK
     Route: 048
  2. ZINPLAVA [Suspect]
     Active Substance: BEZLOTOXUMAB
     Indication: PROPHYLAXIS
  3. ZINPLAVA [Suspect]
     Active Substance: BEZLOTOXUMAB
     Indication: CLOSTRIDIUM DIFFICILE INFECTION
     Dosage: 10 MILLIGRAM/KILOGRAM
     Dates: start: 20180709

REACTIONS (3)
  - Clostridium difficile infection [Recovered/Resolved]
  - Treatment failure [Unknown]
  - Off label use [Unknown]

NARRATIVE: CASE EVENT DATE: 20180709
